FAERS Safety Report 5504334-9 (Version None)
Quarter: 2007Q4

REPORT INFORMATION
  Report Type: 
  Country: None (occurrence: None)
  Receive Date: 20071030
  Receipt Date: 20071011
  Transmission Date: 20080405
  Serious: Yes (Hospitalization)
  Sender: FDA-Public Use
  Company Number: 6038742

PATIENT
  Age: 74 Year
  Sex: Male

DRUGS (11)
  1. BISOPROLOL FUMARATE [Suspect]
     Indication: DRUG USE FOR UNKNOWN INDICATION
     Dosage: 1.25 MG (1.25 MG,1 D), ORAL
     Route: 048
     Dates: start: 20070421, end: 20070503
  2. LESCOL (80 MG, CAPSULE) (FLUVASTATIN) [Concomitant]
  3. MONO-TILDIEM LP (300 MG, CAPSULE) (DILTIAZEM HYDROCHLORIDE) [Concomitant]
  4. VENTOLINE (NEBULISER SOLUTION) (SALBUTAMOL) [Concomitant]
  5. PRESTOLE (CAPSULE) (HYDROCHLOROTHIAZIDE, TRIAMTERENE) [Concomitant]
  6. PREVISCAN (TABLET) (FLUINDIONE) [Concomitant]
  7. FUROSEMIDE [Concomitant]
  8. HEMIGOKINE (TABLET) (DIGOXIN) [Concomitant]
  9. OMEPRAZOLE [Concomitant]
  10. TRIATEC (TABLET) (RAMIPRIL) [Concomitant]
  11. SERETIDE DISKUS (INHALATION POWDER) (FLUTICASONE PROPIONATE, SALMETERO [Concomitant]

REACTIONS (10)
  - ATRIAL FIBRILLATION [None]
  - BLOOD CULTURE POSITIVE [None]
  - BLOOD PRESSURE INCREASED [None]
  - CARDIOMEGALY [None]
  - INTERNATIONAL NORMALISED RATIO INCREASED [None]
  - ISCHAEMIC CARDIOMYOPATHY [None]
  - LEFT VENTRICULAR FAILURE [None]
  - LUNG DISORDER [None]
  - RENAL FAILURE [None]
  - RESPIRATORY FAILURE [None]
